FAERS Safety Report 17686854 (Version 1)
Quarter: 2020Q2

REPORT INFORMATION
  Report Type: Spontaneous
  Country: US (occurrence: US)
  Receive Date: 20200421
  Receipt Date: 20200421
  Transmission Date: 20200714
  Serious: No
  Sender: FDA-Public Use
  Company Number: US-JNJFOC-20200407977

PATIENT

DRUGS (1)
  1. ZYRTEC [Suspect]
     Active Substance: CETIRIZINE HYDROCHLORIDE
     Indication: PRODUCT USED FOR UNKNOWN INDICATION
     Dosage: TOOK 1/2 TABLET MOST DAYS FOR 4 YEARS AND KEPT CUTTING DOWN
     Route: 065

REACTIONS (2)
  - Adverse event [Unknown]
  - Wrong technique in product usage process [Unknown]
